FAERS Safety Report 6751508-5 (Version None)
Quarter: 2010Q2

REPORT INFORMATION
  Report Type: 
  Country: None (occurrence: None)
  Receive Date: 20100602
  Receipt Date: 20100525
  Transmission Date: 20101027
  Serious: Yes (Hospitalization)
  Sender: FDA-Public Use
  Company Number: US-ROCHE-703660

PATIENT
  Sex: Female
  Weight: 71.9 kg

DRUGS (6)
  1. BEVACIZUMAB [Suspect]
     Indication: NON-SMALL CELL LUNG CANCER STAGE IV
     Route: 042
     Dates: start: 20091008, end: 20091210
  2. PACLITAXEL [Suspect]
     Indication: NON-SMALL CELL LUNG CANCER STAGE IV
     Route: 042
     Dates: start: 20091008, end: 20091210
  3. CARBOPLATIN [Suspect]
     Indication: NON-SMALL CELL LUNG CANCER STAGE IV
     Dosage: DOSE: 6 AUC
     Route: 042
     Dates: start: 20091008, end: 20091210
  4. LORTAB [Concomitant]
     Indication: PAIN
     Dosage: DOSE: 5/325 MG FREQUENCY: EVERY 2-3 HOURS AS NEEDED
     Route: 048
  5. MS CONTIN [Concomitant]
  6. MORPHINE SULFATE [Concomitant]

REACTIONS (1)
  - BILE DUCT OBSTRUCTION [None]
